FAERS Safety Report 15883572 (Version 1)
Quarter: 2019Q1

REPORT INFORMATION
  Report Type: Spontaneous
  Country: IT (occurrence: IT)
  Receive Date: 20190129
  Receipt Date: 20190129
  Transmission Date: 20190417
  Serious: Yes (Life-Threatening)
  Sender: FDA-Public Use
  Company Number: IT-ASTRAZENECA-2019SE15158

PATIENT
  Age: 30 Year
  Sex: Female

DRUGS (3)
  1. SEROQUEL [Suspect]
     Active Substance: QUETIAPINE FUMARATE
     Indication: TRANSIENT PSYCHOSIS
     Dosage: 30.0DF ONCE/SINGLE ADMINISTRATION
     Route: 048
     Dates: start: 20180302, end: 20180302
  2. EN [Suspect]
     Active Substance: DELORAZEPAM
     Indication: TRANSIENT PSYCHOSIS
     Dosage: 20.0ML ONCE/SINGLE ADMINISTRATION
     Route: 048
     Dates: start: 20180302, end: 20180302
  3. PAROXETINE HYDROCHLORIDE. [Concomitant]
     Active Substance: PAROXETINE HYDROCHLORIDE
     Route: 048

REACTIONS (2)
  - Drug abuse [Recovered/Resolved]
  - Intentional overdose [Recovered/Resolved]

NARRATIVE: CASE EVENT DATE: 20180302
